FAERS Safety Report 11632296 (Version 1)
Quarter: 2015Q4

REPORT INFORMATION
  Report Type: Spontaneous
  Country: US (occurrence: US)
  Receive Date: 20151015
  Receipt Date: 20151015
  Transmission Date: 20160304
  Serious: No
  Sender: FDA-Public Use
  Company Number: US-MYLANLABS-2015M1027538

PATIENT
  Sex: Female

DRUGS (1)
  1. ESZOPICLONE. [Suspect]
     Active Substance: ESZOPICLONE
     Indication: INSOMNIA
     Dosage: 3 MG, ONCE TO BE TAKEN BEFORE A SLEEP STUDY
     Route: 048
     Dates: start: 20150801, end: 20150801

REACTIONS (1)
  - Drug ineffective [Not Recovered/Not Resolved]

NARRATIVE: CASE EVENT DATE: 20150801
